FAERS Safety Report 15133745 (Version 2)
Quarter: 2019Q1

REPORT INFORMATION
  Report Type: Spontaneous
  Country: US (occurrence: US)
  Receive Date: 20180712
  Receipt Date: 20190102
  Transmission Date: 20190417
  Serious: No
  Sender: FDA-Public Use
  Company Number: US-PFIZER INC-2018279613

PATIENT
  Age: 15 Year
  Sex: Male

DRUGS (1)
  1. GENOTROPIN [Suspect]
     Active Substance: SOMATROPIN
     Indication: BLOOD GROWTH HORMONE ABNORMAL
     Dosage: 2.2 MG, DAILY (SEVEN DAYS PER WEEK)
     Dates: start: 201708

REACTIONS (5)
  - Bone density increased [Unknown]
  - Hypothyroidism [Unknown]
  - Arthralgia [Unknown]
  - Insulin-like growth factor increased [Unknown]
  - Hypertension [Unknown]

NARRATIVE: CASE EVENT DATE: 201709
